FAERS Safety Report 4617219-7 (Version None)
Quarter: 2005Q1

REPORT INFORMATION
  Report Type: 
  Country: None (occurrence: None)
  Receive Date: 20050323
  Receipt Date: 20050317
  Transmission Date: 20050727
  Serious: Yes (Other)
  Sender: FDA-Public Use
  Company Number: PHBS2005BE04026

PATIENT
  Age: 74 Year
  Sex: Female

DRUGS (2)
  1. ARACHIS OIL [Suspect]
     Indication: PSORIASIS
     Route: 061
     Dates: start: 20050124, end: 20050228
  2. SANDIMMUNE [Suspect]
     Indication: PSORIASIS
     Route: 061
     Dates: start: 20050124, end: 20050228

REACTIONS (6)
  - APPLICATION SITE REACTION [None]
  - AUTOIMMUNE DISORDER [None]
  - CYANOSIS [None]
  - MEDICATION ERROR [None]
  - PERIPHERAL ISCHAEMIA [None]
  - PERIPHERAL VASCULAR DISORDER [None]
